FAERS Safety Report 6418853-4 (Version None)
Quarter: 2009Q4

REPORT INFORMATION
  Report Type: 
  Country: None (occurrence: None)
  Receive Date: 20091029
  Receipt Date: 20091020
  Transmission Date: 20100525
  Serious: Yes (Hospitalization)
  Sender: FDA-Public Use
  Company Number: US-BIOGENIDEC-2009BI018216

PATIENT
  Sex: Female
  Weight: 58 kg

DRUGS (4)
  1. AVONEX [Suspect]
     Indication: MULTIPLE SCLEROSIS
     Route: 030
     Dates: start: 20080108, end: 20090820
  2. AVONEX [Suspect]
     Route: 030
     Dates: start: 19981201, end: 20020812
  3. AVONEX [Suspect]
     Route: 030
     Dates: start: 20070501, end: 20070903
  4. AVONEX [Suspect]
     Route: 030
     Dates: start: 20091001

REACTIONS (9)
  - HYPOAESTHESIA FACIAL [None]
  - HYPOAESTHESIA ORAL [None]
  - IMMUNE SYSTEM DISORDER [None]
  - INFLUENZA LIKE ILLNESS [None]
  - MASTICATION DISORDER [None]
  - MOTOR DYSFUNCTION [None]
  - TRIGEMINAL NEURALGIA [None]
  - VITAMIN D DECREASED [None]
  - WHITE BLOOD CELL COUNT DECREASED [None]
